FAERS Safety Report 4709994-8 (Version None)
Quarter: 2005Q3

REPORT INFORMATION
  Report Type: 
  Country: None (occurrence: None)
  Receive Date: 20050708
  Receipt Date: 20050413
  Transmission Date: 20060218
  Serious: Yes (Hospitalization)
  Sender: FDA-Public Use
  Company Number: 200513086US

PATIENT
  Sex: Female
  Weight: 90.45 kg

DRUGS (24)
  1. TAXOTERE [Suspect]
     Indication: BREAST CANCER
     Route: 042
     Dates: start: 20050308, end: 20050329
  2. XELODA [Suspect]
     Indication: BREAST CANCER
     Route: 048
     Dates: start: 20050308, end: 20050401
  3. MICARDIS [Concomitant]
     Indication: HYPERTENSION
     Route: 048
     Dates: start: 20041001
  4. AMARYL [Concomitant]
     Indication: DIABETES MELLITUS
     Dosage: DOSE: UNK
     Route: 048
     Dates: start: 20041001
  5. AVANDAMET [Concomitant]
     Indication: DIABETES MELLITUS
     Dosage: DOSE: 4/500
     Route: 048
     Dates: start: 20041001
  6. VICODIN [Concomitant]
     Dosage: DOSE: UNK
  7. SYNTHROID [Concomitant]
     Indication: HYPOTHYROIDISM
     Route: 048
     Dates: start: 20041001
  8. IBUPROFEN [Concomitant]
     Indication: PAIN
     Route: 048
     Dates: start: 20040101, end: 20041101
  9. ADVIL [Concomitant]
     Indication: PAIN
     Route: 048
     Dates: start: 20041101
  10. TYLENOL [Concomitant]
     Indication: PAIN
     Route: 048
     Dates: start: 20041001
  11. ANTIEMETICS AND ANTINAUSEANTS [Concomitant]
     Indication: NAUSEA
     Dosage: DOSE: 125MG/80MG
     Route: 048
     Dates: start: 20050104
  12. ATIVAN [Concomitant]
     Indication: ANXIETY
     Route: 048
     Dates: start: 20050125
  13. LEVAQUIN [Concomitant]
     Indication: UPPER RESPIRATORY TRACT INFECTION
     Route: 048
     Dates: start: 20050110, end: 20050115
  14. COMPAZINE [Concomitant]
     Indication: NAUSEA
     Route: 048
     Dates: start: 20050104
  15. HEMOCYTE TABLET [Concomitant]
     Indication: ANAEMIA
     Dosage: DOSE: UNK
     Dates: start: 20050125
  16. PHENERGAN [Concomitant]
     Indication: NAUSEA
  17. IMODIUM [Concomitant]
     Indication: DIARRHOEA
     Dosage: DOSE: UNK
     Route: 048
     Dates: start: 20050315, end: 20050410
  18. AMBIEN [Concomitant]
     Indication: INSOMNIA
     Route: 048
     Dates: start: 20050315
  19. DARVOCET-N 100 [Concomitant]
     Indication: BONE PAIN
     Dosage: DOSE: N-100
     Route: 048
     Dates: start: 20050315
  20. NEULASTA [Concomitant]
     Indication: WHITE BLOOD CELL COUNT DECREASED
     Route: 058
     Dates: start: 20050215
  21. ARANESP [Concomitant]
     Indication: HAEMOGLOBIN DECREASED
     Route: 058
     Dates: start: 20041214
  22. HYDROCODONE [Concomitant]
     Indication: PAIN
     Dosage: DOSE: 5/500
     Route: 048
     Dates: start: 20050101
  23. COUMADIN [Concomitant]
     Indication: PROPHYLAXIS
     Route: 048
  24. AMITRYPTYLINE [Concomitant]
     Route: 048
     Dates: start: 20050407

REACTIONS (6)
  - BLOOD CREATINE PHOSPHOKINASE INCREASED [None]
  - BUTTOCK PAIN [None]
  - DIFFICULTY IN WALKING [None]
  - MYOSITIS [None]
  - OEDEMA [None]
  - OSTEOARTHRITIS [None]
